FAERS Safety Report 21057961 (Version 2)
Quarter: 2022Q3

REPORT INFORMATION
  Report Type: Spontaneous
  Country: FR (occurrence: FR)
  Receive Date: 20220708
  Receipt Date: 20220729
  Transmission Date: 20221026
  Serious: No
  Sender: FDA-Public Use
  Company Number: FR-SANOFI-01174159

PATIENT
  Age: 9 Month
  Sex: Female

DRUGS (1)
  1. RIFAMPIN [Suspect]
     Active Substance: RIFAMPIN
     Indication: Meningitis meningococcal
     Dosage: 100 MG, BID

REACTIONS (1)
  - Drug ineffective [Unknown]
